FAERS Safety Report 8431485-1 (Version None)
Quarter: 2012Q2

REPORT INFORMATION
  Report Type: 
  Country: None (occurrence: None)
  Receive Date: 20120607
  Receipt Date: 20120607
  Transmission Date: 20120825
  Serious: Yes (Life-Threatening, Hospitalization, Disabling, Other)
  Sender: FDA-Public Use
  Company Number: None

PATIENT
  Sex: Female
  Weight: 86.1834 kg

DRUGS (6)
  1. DARVOCET [Concomitant]
  2. CHANTIX [Concomitant]
  3. CIPROFLOXACIN [Suspect]
     Indication: INFECTION
     Dosage: 500 MG NOW + THEN 1 TB AT 8AM + 8PM
     Dates: start: 20120223
  4. ZOLOFT [Concomitant]
  5. PAXIL [Concomitant]
  6. LEVAQUIN [Concomitant]

REACTIONS (9)
  - RHEUMATOID ARTHRITIS [None]
  - PELVIC PAIN [None]
  - ARTHROPATHY [None]
  - ANGINA PECTORIS [None]
  - CARDIAC DISORDER [None]
  - NERVOUSNESS [None]
  - MUSCULAR WEAKNESS [None]
  - HAEMATOCHEZIA [None]
  - TENDON DISORDER [None]
